FAERS Safety Report 5244555-6 (Version None)
Quarter: 2007Q1

REPORT INFORMATION
  Report Type: 
  Country: None (occurrence: None)
  Receive Date: 20061201
  Receipt Date: 20060705
  Transmission Date: 20070707
  Serious: No
  Sender: FDA-Public Use
  Company Number: 2006PV019672

PATIENT
  Age: 47 Year
  Sex: Male
  Weight: 97.0698 kg

DRUGS (3)
  1. BYETTA [Suspect]
     Indication: DIABETES MELLITUS NON-INSULIN-DEPENDENT
     Dosage: SEE IMAGE
     Route: 058
     Dates: end: 20060101
  2. MONOPRIL [Suspect]
     Indication: DRUG USE FOR UNKNOWN INDICATION
  3. ACE I NIHIBITORS [Suspect]
     Indication: DRUG USE FOR UNKNOWN INDICATION

REACTIONS (3)
  - ARTHRALGIA [None]
  - CHEST PAIN [None]
  - PARAESTHESIA [None]
